FAERS Safety Report 4388095-5 (Version None)
Quarter: 2004Q2

REPORT INFORMATION
  Report Type: 
  Country: None (occurrence: None)
  Receive Date: 20040623
  Receipt Date: 20040616
  Transmission Date: 20050107
  Serious: Yes (Hospitalization, Other)
  Sender: FDA-Public Use
  Company Number: KII-2004-0011418

PATIENT
  Age: 36 Year
  Sex: Female

DRUGS (7)
  1. MORPHINE SULFATE [Suspect]
     Dosage: ORAL
     Route: 048
  2. ACETAMINOPHEN AND HYDROCODONE BITARTRATE [Suspect]
     Dosage: ORAL
     Route: 048
  3. BENZODIAZEPINE DERIVATIVES () [Suspect]
     Dosage: ORAL
     Route: 048
  4. CARISOPRODOL [Suspect]
     Dosage: ORAL
     Route: 048
  5. TRAZODONE HCL [Suspect]
     Dosage: ORAL
     Route: 048
  6. CELEXA [Suspect]
     Dosage: ORAL
     Route: 048
  7. TETRAHYDROCANNABINOL (TETRAHYDROCANNABINOL) [Suspect]

REACTIONS (7)
  - ACIDOSIS [None]
  - COMA [None]
  - HYPOPERFUSION [None]
  - HYPOTENSION [None]
  - MULTIPLE DRUG OVERDOSE [None]
  - PCO2 DECREASED [None]
  - PO2 INCREASED [None]
